FAERS Safety Report 17213114 (Version 2)
Quarter: 2020Q4

REPORT INFORMATION
  Report Type: Spontaneous
  Country: FR (occurrence: FR)
  Receive Date: 20191230
  Receipt Date: 20201106
  Transmission Date: 20210113
  Serious: Yes (Hospitalization)
  Sender: FDA-Public Use
  Company Number: NVSC2019FR070783

PATIENT
  Age: 56 Year
  Sex: Male
  Weight: 85 kg

DRUGS (5)
  1. ABASAGLAR [Concomitant]
     Active Substance: INSULIN GLARGINE
     Indication: TYPE 2 DIABETES MELLITUS
     Dosage: 20 IU, QD
     Route: 058
  2. PARACETAMOL [Concomitant]
     Active Substance: ACETAMINOPHEN
     Indication: PAIN
     Dosage: UNK
     Route: 048
  3. APIDRA [Concomitant]
     Active Substance: INSULIN GLULISINE
     Indication: TYPE 2 DIABETES MELLITUS
     Dosage: 48 IU, QD
     Route: 058
  4. LEVOFLOXACIN. [Suspect]
     Active Substance: LEVOFLOXACIN
     Indication: DIABETIC FOOT
     Dosage: UNK
     Route: 048
     Dates: start: 20190825, end: 20190905
  5. LOVENOX [Concomitant]
     Active Substance: ENOXAPARIN SODIUM
     Indication: THROMBOSIS PROPHYLAXIS
     Dosage: 4000 IU, QD
     Route: 058

REACTIONS (4)
  - Diabetic bullosis [Recovered/Resolved with Sequelae]
  - Eschar [Recovered/Resolved with Sequelae]
  - Epidermal necrosis [Recovered/Resolved with Sequelae]
  - Erysipelas [Recovered/Resolved with Sequelae]

NARRATIVE: CASE EVENT DATE: 20190903
